FAERS Safety Report 9819592 (Version 1)
Quarter: 2014Q1

REPORT INFORMATION
  Report Type: Spontaneous
  Country: US (occurrence: US)
  Receive Date: 20140115
  Receipt Date: 20140115
  Transmission Date: 20141002
  Serious: Yes (Other)
  Sender: FDA-Public Use
  Company Number: US-B.I. PHARMACEUTICALS,INC./RIDGEFIELD-2014-BI-01566BP

PATIENT
  Age: 5 Decade
  Sex: Male

DRUGS (1)
  1. FLOMAX CAPSULES [Suspect]
     Dosage: 0.4 MG
     Route: 048

REACTIONS (4)
  - Gastrointestinal tube insertion [Unknown]
  - Tracheostomy [Unknown]
  - Dysphagia [Not Recovered/Not Resolved]
  - Bedridden [Unknown]
